FAERS Safety Report 25468045 (Version 2)
Quarter: 2025Q3

REPORT INFORMATION
  Report Type: Spontaneous
  Country: US (occurrence: US)
  Receive Date: 20250623
  Receipt Date: 20250707
  Transmission Date: 20251021
  Serious: No
  Sender: PFIZER
  Company Number: US-PFIZER INC-202500117526

PATIENT
  Age: 77 Year
  Sex: Male

DRUGS (1)
  1. GENOTROPIN [Suspect]
     Active Substance: SOMATROPIN

REACTIONS (3)
  - Device defective [Unknown]
  - Poor quality device used [Unknown]
  - Device breakage [Unknown]

NARRATIVE: CASE EVENT DATE: 20250603
